FAERS Safety Report 9373925 (Version 2)
Quarter: 2013Q4

REPORT INFORMATION
  Report Type: Spontaneous
  Country: US (occurrence: US)
  Receive Date: 20130628
  Receipt Date: 20131106
  Transmission Date: 20140711
  Serious: Yes (Hospitalization, Other)
  Sender: FDA-Public Use
  Company Number: US-009507513-1306USA011690

PATIENT
  Age: 61 Year
  Sex: Female

DRUGS (3)
  1. NASONEX [Suspect]
     Indication: MIDDLE EAR EFFUSION
     Dosage: 51 MCG/ ONE SPRAY IN EACH NOSTRIL, TWICE DAILY
     Route: 045
     Dates: start: 20130420, end: 20130421
  2. CIPROFLOXACIN [Concomitant]
  3. SINGULAIR [Concomitant]

REACTIONS (5)
  - Loss of consciousness [Recovering/Resolving]
  - Deafness [Recovering/Resolving]
  - Hallucination [Recovering/Resolving]
  - Hypotension [Recovering/Resolving]
  - Off label use [Unknown]
